FAERS Safety Report 8963129 (Version 2)
Quarter: 2013Q1

REPORT INFORMATION
  Report Type: Report from Study
  Country: US (occurrence: US)
  Receive Date: 20121214
  Receipt Date: 20130130
  Transmission Date: 20140127
  Serious: No
  Sender: FDA-Public Use
  Company Number: US-VERTEX PHARMACEUTICALS INC.-2012-026078

PATIENT
  Age: 60 Year
  Sex: Female
  Weight: 82 kg

DRUGS (8)
  1. VX-950 (TELAPREVIR) [Suspect]
     Indication: HEPATITIS C
     Dosage: 750 MG, TID
     Route: 048
     Dates: start: 2012
  2. PEGASYS [Suspect]
     Indication: HEPATITIS C
     Dosage: 180 ?G, QW
     Route: 058
     Dates: start: 2012
  3. RIBAVIRIN [Suspect]
     Indication: HEPATITIS C
     Dosage: 600 MG, BID
     Route: 048
     Dates: start: 2012
  4. HUMALOG [Concomitant]
     Dosage: 20 UT, BID
     Route: 058
  5. HUMULIN N [Concomitant]
     Dosage: 50 UT, BID
     Route: 058
  6. INDERAL LA [Concomitant]
     Dosage: 80 MG, QD
     Route: 048
  7. ZOLOFT [Concomitant]
     Dosage: 50 MG, UNK
  8. VITAMIN D [Concomitant]
     Dosage: 1000 UT, UNK

REACTIONS (7)
  - Depression [Unknown]
  - Blood count abnormal [Unknown]
  - Influenza like illness [Unknown]
  - Abdominal discomfort [Unknown]
  - Rash pruritic [Unknown]
  - Vomiting [Unknown]
  - Nausea [Unknown]
